FAERS Safety Report 18863049 (Version 2)
Quarter: 2021Q1

REPORT INFORMATION
  Report Type: Report from Study
  Country: JP (occurrence: JP)
  Receive Date: 20210209
  Receipt Date: 20210310
  Transmission Date: 20210420
  Serious: No
  Sender: FDA-Public Use
  Company Number: JP-009507513-2102JPN000511J

PATIENT
  Age: 80 Year
  Sex: Male
  Weight: 44 kg

DRUGS (16)
  1. FLAVITAN [Concomitant]
     Active Substance: FLAVIN ADENINE DINUCLEOTIDE
     Dosage: 10 MILLIGRAM, TID
     Route: 048
  2. MIYA?BM [Concomitant]
     Active Substance: CLOSTRIDIUM BUTYRICUM SPORES STRAIN M-55
     Indication: CLOSTRIDIUM DIFFICILE INFECTION
     Dosage: 1 GRAM, QID
     Route: 048
     Dates: start: 20171226
  3. BERIZYM (BIODIASTASE (+) CELLULASE (+) LIPASE (+) PANCREATIN) [Concomitant]
     Dosage: ONE PACKET, TID
     Route: 048
  4. URSO [Concomitant]
     Active Substance: URSODIOL
     Dosage: 100 MILLIGRAM, TID
     Route: 048
  5. TAKEPRON [Concomitant]
     Active Substance: LANSOPRAZOLE
     Dosage: 15 MILLIGRAM, QD
     Route: 048
  6. BEZLOTOXUMAB [Suspect]
     Active Substance: BEZLOTOXUMAB
     Indication: INFECTION PROPHYLAXIS
     Dosage: 450 MILLIGRAM, QD
     Route: 041
     Dates: start: 20180104, end: 20180104
  7. BIOFERMIN (BIFIDOBACTERIUM BIFIDUM) [Concomitant]
     Dosage: 1 DOSAGE FORM, TID
     Route: 048
  8. ADALAT CC [Concomitant]
     Active Substance: NIFEDIPINE
     Indication: HYPERTENSION
     Dosage: 20 MILLIGRAM, QD
     Route: 048
  9. PREDNISOLONE. [Concomitant]
     Active Substance: PREDNISOLONE
     Indication: INTERSTITIAL LUNG DISEASE
     Dosage: 3 MILLIGRAM, QD
     Route: 048
  10. MUCODYNE [Concomitant]
     Active Substance: CARBOCYSTEINE
     Dosage: 500 MILLIGRAM, TID
     Route: 048
  11. BARACLUDE [Concomitant]
     Active Substance: ENTECAVIR
     Indication: HEPATITIS B
     Dosage: 0.5 MILLIGRAM, QD
     Route: 048
  12. VANCOMYCIN HYDROCHLORIDE. [Concomitant]
     Active Substance: VANCOMYCIN HYDROCHLORIDE
     Dosage: 0.125 GRAM, QID
     Route: 048
     Dates: start: 20180112, end: 20180124
  13. VANCOMYCIN HYDROCHLORIDE. [Concomitant]
     Active Substance: VANCOMYCIN HYDROCHLORIDE
     Indication: CLOSTRIDIUM DIFFICILE INFECTION
     Dosage: 0.25 GRAM, QID
     Route: 048
     Dates: start: 20171227, end: 20180111
  14. PROMAC (POLAPREZINC) [Concomitant]
     Active Substance: POLAPREZINC
     Dosage: 75 MILLIGRAM, QD
     Route: 048
  15. MUCOSOLVAN [Concomitant]
     Active Substance: AMBROXOL HYDROCHLORIDE
     Dosage: 15 MILLIGRAM, TID
     Route: 048
  16. MICARDIS [Concomitant]
     Active Substance: TELMISARTAN
     Indication: HYPERTENSION
     Dosage: 40 MILLIGRAM, BID
     Route: 048

REACTIONS (2)
  - Overdose [Unknown]
  - Diarrhoea [Unknown]

NARRATIVE: CASE EVENT DATE: 2018
